FAERS Safety Report 7271512-0 (Version None)
Quarter: 2011Q1

REPORT INFORMATION
  Report Type: 
  Country: None (occurrence: None)
  Receive Date: 20110203
  Receipt Date: 20101122
  Transmission Date: 20110831
  Serious: Yes (Hospitalization, Other)
  Sender: FDA-Public Use
  Company Number: US-BAYER-200939098NA

PATIENT
  Sex: Female
  Weight: 97.727 kg

DRUGS (9)
  1. NICOTINE [Concomitant]
     Dosage: 21 MG (DAILY DOSE), QD,
     Dates: start: 20071030
  2. CRESTOR [Concomitant]
  3. AGGRENOX [Concomitant]
     Indication: CEREBROVASCULAR ACCIDENT PROPHYLAXIS
     Dosage: 25/200
  4. ZOCOR [Concomitant]
     Dosage: 40 MG (DAILY DOSE), QD,
  5. YASMIN [Suspect]
     Indication: MENSTRUAL CYCLE MANAGEMENT
     Dosage: 1 DF (DAILY DOSE), QD,
     Dates: start: 20061102, end: 20070817
  6. ASPIRIN [Concomitant]
     Indication: CEREBROVASCULAR ACCIDENT PROPHYLAXIS
     Dosage: 81 MG (DAILY DOSE), QD,
  7. LISINOPRIL [Concomitant]
     Dates: start: 20071001
  8. LEXAPRO [Concomitant]
  9. ZOLOFT [Concomitant]
     Dosage: 100 MG (DAILY DOSE), ,

REACTIONS (8)
  - DYSPHAGIA [None]
  - BLOOD PRESSURE SYSTOLIC INCREASED [None]
  - APHASIA [None]
  - ISCHAEMIC STROKE [None]
  - NERVOUS SYSTEM DISORDER [None]
  - HEADACHE [None]
  - SENSATION OF HEAVINESS [None]
  - HYPOAESTHESIA [None]
